FAERS Safety Report 10084051 (Version 1)
Quarter: 2014Q2

REPORT INFORMATION
  Report Type: Spontaneous
  Country: CA (occurrence: None)
  Receive Date: 20140415
  Receipt Date: 20140415
  Transmission Date: 20141212
  Serious: Yes (Hospitalization)
  Sender: FDA-Public Use
  Company Number: CA-013710

PATIENT
  Age: 85 Year
  Sex: Male

DRUGS (4)
  1. FIRMAGON [Suspect]
     Indication: PROSTATE CANCER
     Route: 058
     Dates: start: 20130425, end: 20130425
  2. APO CEPHALEXIN [Concomitant]
  3. LAXATIVES [Concomitant]
  4. STOOL SOFTENER [Concomitant]

REACTIONS (10)
  - Injection site swelling [None]
  - Injection site pain [None]
  - Hot flush [None]
  - Constipation [None]
  - Injection site erythema [None]
  - Epistaxis [None]
  - Injection site extravasation [None]
  - Chills [None]
  - Tremor [None]
  - Injection site pruritus [None]
